FAERS Safety Report 10845663 (Version 3)
Quarter: 2015Q2

REPORT INFORMATION
  Report Type: Spontaneous
  Country: BE (occurrence: BE)
  Receive Date: 20150220
  Receipt Date: 20150407
  Transmission Date: 20150821
  Serious: No
  Sender: FDA-Public Use
  Company Number: BE-BAYER-2015-021075

PATIENT
  Sex: Female

DRUGS (1)
  1. GADOVIST [Suspect]
     Active Substance: GADOBUTROL
     Dosage: UNK UNK, ONCE

REACTIONS (1)
  - Vomiting [None]
